APPROVED DRUG PRODUCT: METRONIDAZOLE
Active Ingredient: METRONIDAZOLE
Strength: 500MG
Dosage Form/Route: TABLET;ORAL
Application: A207309 | Product #002
Applicant: FLAMINGO PHARMACEUTICALS LTD
Approved: May 16, 2016 | RLD: No | RS: No | Type: DISCN